FAERS Safety Report 23852400 (Version 1)
Quarter: 2024Q2

REPORT INFORMATION
  Report Type: Report from Study
  Country: ZA (occurrence: ZA)
  Receive Date: 20240514
  Receipt Date: 20240514
  Transmission Date: 20240716
  Serious: Yes (Death)
  Sender: FDA-Public Use
  Company Number: ZA-ABBVIE-5758773

PATIENT
  Age: 54 Year
  Sex: Female

DRUGS (1)
  1. OZURDEX [Suspect]
     Active Substance: DEXAMETHASONE
     Indication: Diabetic retinal oedema
     Dosage: TIME INTERVAL: AS NECESSARY: FORM STRENGTH- DEX 0.7MG INS ?FREQUENCY TEXT: EVERY 6 MONTHS
     Route: 050
     Dates: start: 20210729, end: 20230110

REACTIONS (1)
  - Death [Fatal]
